FAERS Safety Report 8599869-9 (Version None)
Quarter: 2012Q3

REPORT INFORMATION
  Report Type: 
  Country: None (occurrence: None)
  Receive Date: 20120816
  Receipt Date: 20120321
  Transmission Date: 20120928
  Serious: No
  Sender: FDA-Public Use
  Company Number: US-AMGEN-USASP2012013253

PATIENT
  Age: 34 Year
  Sex: Female
  Weight: 62.132 kg

DRUGS (1)
  1. NPLATE [Suspect]
     Indication: IDIOPATHIC THROMBOCYTOPENIC PURPURA
     Dosage: UNK
     Dates: start: 20110826

REACTIONS (2)
  - INFLAMMATION [None]
  - NEUROPATHY PERIPHERAL [None]
